APPROVED DRUG PRODUCT: RAYALDEE
Active Ingredient: CALCIFEDIOL
Strength: 0.03MG
Dosage Form/Route: CAPSULE, EXTENDED RELEASE;ORAL
Application: N208010 | Product #001
Applicant: EIRGEN PHARMA LTD
Approved: Jun 17, 2016 | RLD: Yes | RS: Yes | Type: RX

PATENTS:
Patent 8778373 | Expires: Apr 25, 2028
Patent 9408858 | Expires: Apr 25, 2028
Patent 9943530 | Expires: Feb 2, 2027
Patent 9925147 | Expires: Apr 25, 2028
Patent 8207149 | Expires: Apr 25, 2028
Patent 9925147 | Expires: Apr 25, 2028
Patent 9925147 | Expires: Apr 25, 2028
Patent 8426391 | Expires: Aug 27, 2028
Patent 9925147 | Expires: Apr 25, 2028
Patent 11801253 | Expires: Sep 7, 2030
Patent 11801253 | Expires: Sep 7, 2030
Patent 11801253 | Expires: Sep 7, 2030
Patent 9925147 | Expires: Apr 25, 2028
Patent 9498486 | Expires: Apr 25, 2028
Patent 11154509 | Expires: Apr 25, 2028
Patent 9861644 | Expires: Mar 14, 2034
Patent 8361488 | Expires: Jul 19, 2028
Patent 10300078 | Expires: Mar 14, 2034
Patent 10357502 | Expires: Mar 14, 2034
Patent 10213442 | Expires: Feb 2, 2027
Patent 11253528 | Expires: Mar 14, 2034
Patent 8906410 | Expires: Feb 2, 2027